FAERS Safety Report 11435977 (Version 1)
Quarter: 2015Q3

REPORT INFORMATION
  Report Type: Spontaneous
  Country: US (occurrence: US)
  Receive Date: 20150821
  Receipt Date: 20150821
  Transmission Date: 20151125
  Serious: No
  Sender: FDA-Public Use
  Company Number: US-ELI_LILLY_AND_COMPANY-US201401005805

PATIENT
  Age: 70 Year
  Sex: Male
  Weight: 81.63 kg

DRUGS (2)
  1. CIALIS [Suspect]
     Active Substance: TADALAFIL
     Indication: ERECTILE DYSFUNCTION
     Dosage: 5 MG, QD
     Route: 065
     Dates: start: 201309
  2. CIALIS [Suspect]
     Active Substance: TADALAFIL
     Indication: POLLAKIURIA

REACTIONS (2)
  - Suspected counterfeit product [Unknown]
  - Drug ineffective [Unknown]
